FAERS Safety Report 10540482 (Version 2)
Quarter: 2015Q1

REPORT INFORMATION
  Report Type: Spontaneous
  Country: AU (occurrence: None)
  Receive Date: 20141022
  Receipt Date: 20150209
  Transmission Date: 20150720
  Serious: Yes (Other)
  Sender: FDA-Public Use
  Company Number: KAD201410-001294

PATIENT

DRUGS (2)
  1. RIBAVIRIN. [Suspect]
     Active Substance: RIBAVIRIN
     Indication: RESPIRATORY SYNCYTIAL VIRUS INFECTION
     Dosage: IN THREE DIVIDED DOSES
     Route: 042
  2. PREDNISOLONE. [Suspect]
     Active Substance: PREDNISOLONE
     Indication: RESPIRATORY SYNCYTIAL VIRUS INFECTION
     Route: 048

REACTIONS (3)
  - Lung transplant [None]
  - Obliterative bronchiolitis [None]
  - Product use issue [None]
